FAERS Safety Report 6544336-7 (Version None)
Quarter: 2010Q1

REPORT INFORMATION
  Report Type: 
  Country: None (occurrence: None)
  Receive Date: 20100120
  Receipt Date: 20100120
  Transmission Date: 20100710
  Serious: No
  Sender: FDA-Public Use
  Company Number: None

PATIENT
  Age: 55 Year
  Sex: Female
  Weight: 78.0187 kg

DRUGS (1)
  1. ZICAM NOSE SPRAY [Suspect]
     Indication: NASOPHARYNGITIS
     Dosage: 2 SPRAYS/NOSTRIL ONLY ONCE NASAL ONLY USED ONCE
     Route: 045
     Dates: start: 19941001, end: 19941001

REACTIONS (2)
  - ANOSMIA [None]
  - APPLICATION SITE BURN [None]
